FAERS Safety Report 7406352-2 (Version None)
Quarter: 2011Q2

REPORT INFORMATION
  Report Type: 
  Country: None (occurrence: None)
  Receive Date: 20110411
  Receipt Date: 20110407
  Transmission Date: 20111010
  Serious: Yes (Life-Threatening, Hospitalization)
  Sender: FDA-Public Use
  Company Number: JP-PFIZER INC-2011038911

PATIENT
  Age: 45 Year
  Sex: Female

DRUGS (1)
  1. NORVASC [Suspect]
     Indication: HYPERTENSION
     Dosage: 400 MG, UNK
     Route: 048

REACTIONS (4)
  - OVERDOSE [None]
  - NON-CARDIOGENIC PULMONARY OEDEMA [None]
  - SUICIDE ATTEMPT [None]
  - HYPOTENSION [None]
